FAERS Safety Report 6978197-9 (Version None)
Quarter: 2010Q3

REPORT INFORMATION
  Report Type: 
  Country: None (occurrence: None)
  Receive Date: 20100913
  Receipt Date: 20100903
  Transmission Date: 20110219
  Serious: Yes (Disabling)
  Sender: FDA-Public Use
  Company Number: FR-KINGPHARMUSA00001-K201001122

PATIENT
  Age: 72 Year
  Sex: Female

DRUGS (5)
  1. ALTACE [Suspect]
     Indication: HYPERTENSION
     Dosage: 5 MG, QD
     Route: 048
     Dates: start: 20100223, end: 20100719
  2. TICLOPIDINE HYDROCHLORIDE [Concomitant]
  3. FUROSEMIDE [Concomitant]
  4. BISOPROLOL FUMARATE [Concomitant]
  5. CANRENONE [Concomitant]

REACTIONS (3)
  - ARTHROPATHY [None]
  - ECCHYMOSIS [None]
  - MOBILITY DECREASED [None]
